FAERS Safety Report 15987011 (Version 1)
Quarter: 2019Q1

REPORT INFORMATION
  Report Type: Report from Study
  Country: None (occurrence: CO)
  Receive Date: 20190220
  Receipt Date: 20190220
  Transmission Date: 20190418
  Serious: Yes (Death, Other)
  Sender: FDA-Public Use
  Company Number: CO-ABBVIE-19S-036-2673729-00

PATIENT
  Age: 71 Year
  Sex: Male

DRUGS (1)
  1. ZEMPLAR [Suspect]
     Active Substance: PARICALCITOL
     Indication: HYPERPARATHYROIDISM SECONDARY
     Route: 042
     Dates: start: 20181013, end: 20181213

REACTIONS (2)
  - Cardio-respiratory arrest [Fatal]
  - Chest pain [Unknown]

NARRATIVE: CASE EVENT DATE: 20190205
